FAERS Safety Report 13913888 (Version 1)
Quarter: 2017Q3

REPORT INFORMATION
  Report Type: Spontaneous
  Country: US (occurrence: US)
  Receive Date: 20170828
  Receipt Date: 20170828
  Transmission Date: 20171127
  Serious: No
  Sender: FDA-Public Use
  Company Number: US-ROCHE-1140768

PATIENT
  Age: 14 Year
  Sex: Female
  Weight: 66.4 kg

DRUGS (8)
  1. DESMOPRESSIN [Concomitant]
     Active Substance: DESMOPRESSIN
     Dosage: 1 PUFF
     Route: 065
  2. CORTEF [Concomitant]
     Active Substance: HYDROCORTISONE
     Dosage: 10 MG IN THE MORNING, 5 MG IN THE EVENING
     Route: 065
  3. MULTIVITAMIN [Concomitant]
     Active Substance: VITAMINS
  4. PREMARIN [Concomitant]
     Active Substance: ESTROGENS, CONJUGATED
     Route: 048
  5. SYNTHROID [Concomitant]
     Active Substance: LEVOTHYROXINE SODIUM
     Route: 048
  6. DILANTIN [Concomitant]
     Active Substance: PHENYTOIN
     Route: 065
  7. FOLIC ACID. [Concomitant]
     Active Substance: FOLIC ACID
  8. NUTROPIN [Suspect]
     Active Substance: SOMATROPIN
     Indication: HYPOPITUITARISM
     Dosage: 10 MG/VIAL
     Route: 058

REACTIONS (1)
  - Feeling of body temperature change [Unknown]

NARRATIVE: CASE EVENT DATE: 19981022
